FAERS Safety Report 14063848 (Version 2)
Quarter: 2018Q1

REPORT INFORMATION
  Report Type: Spontaneous
  Country: AU (occurrence: AU)
  Receive Date: 20171009
  Receipt Date: 20180306
  Transmission Date: 20180508
  Serious: Yes (Death, Other)
  Sender: FDA-Public Use
  Company Number: PHHY2017AU147254

PATIENT
  Sex: Female

DRUGS (18)
  1. IDARUBICIN [Suspect]
     Active Substance: IDARUBICIN
     Dosage: 10 MG/M2, QD (DAY 1 TO 3)
     Route: 042
     Dates: start: 20150130
  2. FLUDARABINE [Suspect]
     Active Substance: FLUDARABINE PHOSPHATE
     Indication: ACUTE MYELOID LEUKAEMIA
     Dosage: 30 MG/M2, QD (DAY 1 TO 5)
     Route: 042
     Dates: start: 20150130
  3. CYTARABINE. [Suspect]
     Active Substance: CYTARABINE
     Indication: ACUTE MYELOID LEUKAEMIA
     Dosage: 1500 MG/M2, BID (DAY 1,3,5)
     Route: 042
     Dates: start: 20140916
  4. CYTARABINE. [Suspect]
     Active Substance: CYTARABINE
     Dosage: 3000 MG/M2, BID (1 TO 5)
     Route: 042
     Dates: start: 20150130
  5. POSACONAZOLE [Suspect]
     Active Substance: POSACONAZOLE
     Indication: PRODUCT USED FOR UNKNOWN INDICATION
     Dosage: 200 MG, TID
     Route: 065
     Dates: start: 20140916
  6. AMBI (GUAIFENESIN) [Suspect]
     Active Substance: GUAIFENESIN
     Dosage: 300 MG, BIW
     Route: 042
     Dates: start: 20141115
  7. POSACONAZOLE [Suspect]
     Active Substance: POSACONAZOLE
     Dosage: 200 MG, TID
     Route: 065
     Dates: start: 20150130
  8. POSACONAZOLE [Suspect]
     Active Substance: POSACONAZOLE
     Dosage: 200 MG, TID
     Route: 065
     Dates: start: 20141115
  9. AMBI (GUAIFENESIN) [Suspect]
     Active Substance: GUAIFENESIN
     Indication: PRODUCT USED FOR UNKNOWN INDICATION
     Dosage: 300 MG, BIW
     Route: 065
     Dates: start: 20140916
  10. QUIZARTINIB [Suspect]
     Active Substance: QUIZARTINIB
     Indication: ACUTE MYELOID LEUKAEMIA
     Dosage: UNK
     Route: 065
     Dates: start: 20150130
  11. CYTARABINE. [Suspect]
     Active Substance: CYTARABINE
     Dosage: 3000 MG/M2, BID (1 TO 7)
     Route: 042
     Dates: start: 20141018
  12. CYTARABINE. [Suspect]
     Active Substance: CYTARABINE
     Dosage: 3000 MG/M2, BID (1 TO 7)
     Route: 042
     Dates: start: 20141115
  13. ETOPOSIDE. [Suspect]
     Active Substance: ETOPOSIDE
     Indication: ACUTE MYELOID LEUKAEMIA
     Dosage: 75 MG/M2, QD (DAY 1 TO 7)
     Route: 042
     Dates: start: 20141018
  14. IDARUBICIN [Suspect]
     Active Substance: IDARUBICIN
     Dosage: 9 MG/M2, QD (DAY 1 TO 3)
     Route: 042
     Dates: start: 20141115
  15. AMBI (GUAIFENESIN) [Suspect]
     Active Substance: GUAIFENESIN
     Dosage: 300 MG, BIW
     Route: 042
     Dates: start: 20141018
  16. IDARUBICIN [Suspect]
     Active Substance: IDARUBICIN
     Dosage: 9 MG/M2, QD (DAY 1 TO 3)
     Route: 042
     Dates: start: 20141018
  17. IDARUBICIN [Suspect]
     Active Substance: IDARUBICIN
     Indication: ACUTE MYELOID LEUKAEMIA
     Dosage: 12 MG/M2, QD (DAY 1 TO 3)
     Route: 042
     Dates: start: 20140916
  18. ETOPOSIDE. [Suspect]
     Active Substance: ETOPOSIDE
     Dosage: 75 MG/M2, QD (DAY 1 TO 7)
     Route: 042
     Dates: start: 20141115

REACTIONS (4)
  - Death [Fatal]
  - Drug effect incomplete [Unknown]
  - Product quality issue [None]
  - Acute myeloid leukaemia recurrent [Not Recovered/Not Resolved]
